FAERS Safety Report 8402649 (Version 9)
Quarter: 2013Q3

REPORT INFORMATION
  Report Type: Report from Study
  Country: DE (occurrence: DE)
  Receive Date: 20120213
  Receipt Date: 20130813
  Transmission Date: 20140515
  Serious: Yes (Hospitalization)
  Sender: FDA-Public Use
  Company Number: DE-UCBSA-050693

PATIENT
  Age: 71 Year
  Sex: Female
  Weight: 102 kg

DRUGS (22)
  1. CIMZIA [Suspect]
     Indication: RHEUMATOID ARTHRITIS
     Route: 058
     Dates: start: 201006
  2. MTX [Suspect]
     Indication: RHEUMATOID ARTHRITIS
     Dosage: 15,0 (UNSPECIFIED)
     Route: 048
     Dates: start: 2000
  3. MTX [Suspect]
     Indication: RHEUMATOID ARTHRITIS
     Dates: start: 200306
  4. MTX [Suspect]
     Indication: RHEUMATOID ARTHRITIS
  5. MTX [Suspect]
     Indication: RHEUMATOID ARTHRITIS
  6. MTX [Suspect]
     Indication: RHEUMATOID ARTHRITIS
     Dosage: 15
  7. MTX [Suspect]
     Indication: RHEUMATOID ARTHRITIS
     Dosage: 10.0
  8. MTX [Suspect]
     Indication: RHEUMATOID ARTHRITIS
     Dosage: 7.5
     Dates: start: 2011
  9. PREDNISOLONE [Concomitant]
  10. LEFLUNOMID [Concomitant]
     Dates: start: 200105, end: 200705
  11. BISOPROLOL [Concomitant]
     Indication: HYPERTENSION
  12. HYDROCHLOROTHIAZIDE [Concomitant]
     Indication: HYPERTENSION
     Dosage: DOSE :25
  13. HYDROCHLOROTHIAZIDE [Concomitant]
     Indication: HYPERTENSION
  14. TORASEMIDE [Concomitant]
  15. OLMESARTAN [Concomitant]
     Dosage: 20/25 MG
  16. ALLOPURINOL [Concomitant]
  17. PANTOPRAZOLE [Concomitant]
  18. PANTOPRAZOLE [Concomitant]
  19. PHENPROCOUMON [Concomitant]
     Dosage: 3 MG-DEPENDING ON INR
  20. FLECAINIDE [Concomitant]
  21. FLECAINIDE [Concomitant]
  22. MARCUMAR [Concomitant]
     Dosage: UNKNOWN DOSE

REACTIONS (7)
  - Rotator cuff syndrome [Unknown]
  - Ischaemic stroke [Recovered/Resolved]
  - Atrial fibrillation [Unknown]
  - Shoulder operation [Unknown]
  - Renal failure acute [Unknown]
  - Renal impairment [Unknown]
  - Dyspnoea [Unknown]
